FAERS Safety Report 18193313 (Version 2)
Quarter: 2020Q4

REPORT INFORMATION
  Report Type: Spontaneous
  Country: US (occurrence: US)
  Receive Date: 20200825
  Receipt Date: 20201227
  Transmission Date: 20210113
  Serious: No
  Sender: FDA-Public Use
  Company Number: US-009507513-2008USA010178

PATIENT
  Age: 21 Year
  Sex: Female
  Weight: 63.04 kg

DRUGS (2)
  1. NEXPLANON [Suspect]
     Active Substance: ETONOGESTREL
     Indication: CONTRACEPTION
     Dosage: 1 IMPLANT
     Route: 058
     Dates: start: 20190326, end: 20200818
  2. NEXPLANON [Suspect]
     Active Substance: ETONOGESTREL
     Dosage: 1 IMPLANT
     Route: 059
     Dates: end: 20190326

REACTIONS (5)
  - Complication of device removal [Recovered/Resolved]
  - Implant site pain [Unknown]
  - Device issue [Recovered/Resolved]
  - Pain [Unknown]
  - Complication associated with device [Recovered/Resolved]

NARRATIVE: CASE EVENT DATE: 201912
